FAERS Safety Report 10402322 (Version 1)
Quarter: 2014Q3

REPORT INFORMATION
  Report Type: Spontaneous
  Country: US (occurrence: None)
  Receive Date: 20140820
  Receipt Date: 20140820
  Transmission Date: 20150326
  Serious: Yes (Hospitalization)
  Sender: FDA-Public Use
  Company Number: None

PATIENT
  Age: 35 Year
  Sex: Female
  Weight: 99.3 kg

DRUGS (1)
  1. NATALIZUMAB [Suspect]
     Active Substance: NATALIZUMAB
     Indication: RELAPSING-REMITTING MULTIPLE SCLEROSIS
     Route: 042

REACTIONS (6)
  - Seizure like phenomena [None]
  - Unresponsive to stimuli [None]
  - Confusional state [None]
  - Aggression [None]
  - Oxygen saturation decreased [None]
  - Irritability [None]

NARRATIVE: CASE EVENT DATE: 20140808
